FAERS Safety Report 5638659-3 (Version None)
Quarter: 2008Q1

REPORT INFORMATION
  Report Type: 
  Country: None (occurrence: None)
  Receive Date: 20080226
  Receipt Date: 20070927
  Transmission Date: 20080703
  Serious: No
  Sender: FDA-Public Use
  Company Number: A0680899A

PATIENT
  Age: 60 Year
  Sex: Female
  Weight: 59.1 kg

DRUGS (1)
  1. IMITREX [Suspect]
     Indication: DRUG USE FOR UNKNOWN INDICATION
     Route: 048

REACTIONS (5)
  - ERYTHEMA [None]
  - INJECTION SITE URTICARIA [None]
  - PRURITUS [None]
  - SWELLING [None]
  - URTICARIA [None]
